FAERS Safety Report 17655459 (Version 1)
Quarter: 2020Q2

REPORT INFORMATION
  Report Type: Spontaneous
  Country: US (occurrence: US)
  Receive Date: 20200410
  Receipt Date: 20200410
  Transmission Date: 20200713
  Serious: No
  Sender: FDA-Public Use
  Company Number: US-PFIZER INC-2020145485

PATIENT
  Age: 60 Year
  Sex: Female
  Weight: 97.51 kg

DRUGS (3)
  1. LEVOTHYROXINE SODIUM. [Suspect]
     Active Substance: LEVOTHYROXINE SODIUM
     Indication: HYPOTHYROIDISM
     Dosage: 150 UG, DAILY
  2. OMEPRAZOLE. [Concomitant]
     Active Substance: OMEPRAZOLE
     Indication: GASTRIC DISORDER
     Dosage: 40 MG, UNK (1 CAPSULE 30 MINUTES BEFORE BREAKFAST)
     Route: 048
  3. LEVOTHYROXINE SODIUM. [Suspect]
     Active Substance: LEVOTHYROXINE SODIUM
     Indication: HYPERTHYROIDISM

REACTIONS (8)
  - Constipation [Unknown]
  - Temperature intolerance [Unknown]
  - Weight decreased [Unknown]
  - Palpitations [Unknown]
  - Skin disorder [Unknown]
  - Nail disorder [Unknown]
  - Hair disorder [Unknown]
  - Weight increased [Unknown]
